FAERS Safety Report 9200406 (Version 1)
Quarter: 2013Q1

REPORT INFORMATION
  Report Type: Spontaneous
  Country: FR (occurrence: FR)
  Receive Date: 20130329
  Receipt Date: 20130329
  Transmission Date: 20140127
  Serious: Yes (Other)
  Sender: FDA-Public Use
  Company Number: FR-ABBOTT-13P-056-1070137-00

PATIENT
  Age: 57 Year
  Sex: Male

DRUGS (5)
  1. CYCLOSPORINE [Suspect]
     Indication: EOSINOPHILIC FASCIITIS
     Route: 048
  2. CYCLOSPORINE [Suspect]
     Indication: APLASTIC ANAEMIA
     Dosage: TAPERED
  3. CYCLOSPORINE [Suspect]
  4. ANTITHYMOCYTE IMMUNOGLOBULIN [Suspect]
     Indication: EOSINOPHILIC FASCIITIS
     Route: 048
  5. ANTITHYMOCYTE IMMUNOGLOBULIN [Suspect]
     Indication: APLASTIC ANAEMIA

REACTIONS (5)
  - Eosinophilic fasciitis [Recovered/Resolved]
  - Aplastic anaemia [Recovered/Resolved]
  - Drug ineffective [Recovered/Resolved]
  - Peripheral sensory neuropathy [Recovered/Resolved]
  - Toxicity to various agents [Recovered/Resolved]
